FAERS Safety Report 11196091 (Version 1)
Quarter: 2015Q2

REPORT INFORMATION
  Report Type: Spontaneous
  Country: US (occurrence: None)
  Receive Date: 20150616
  Receipt Date: 20150616
  Transmission Date: 20150821
  Serious: No
  Sender: FDA-Public Use
  Company Number: None

PATIENT
  Sex: Male

DRUGS (7)
  1. SOVALDI [Suspect]
     Active Substance: SOFOSBUVIR
     Indication: HEPATITIS
     Dosage: 200 MG, 1/2 TAB QD
     Route: 048
     Dates: start: 20150227
  2. D3 [Concomitant]
     Active Substance: 25-HYDROXYCHOLECALCIFEROL, 5-TRANS-
  3. ONE TOUCH [Concomitant]
  4. OLYSIO [Suspect]
     Active Substance: SIMEPREVIR
     Indication: HEPATITIS
     Route: 048
     Dates: start: 20150227
  5. FUROSEMIDE. [Concomitant]
     Active Substance: FUROSEMIDE
  6. D3 1000 [Concomitant]
  7. NADOLOL. [Concomitant]
     Active Substance: NADOLOL

REACTIONS (1)
  - Photosensitivity reaction [None]
